FAERS Safety Report 19192291 (Version 2)
Quarter: 2023Q1

REPORT INFORMATION
  Report Type: Spontaneous
  Country: GB (occurrence: GB)
  Receive Date: 20210429
  Receipt Date: 20230313
  Transmission Date: 20230418
  Serious: Yes (Hospitalization, Disabling, Other)
  Sender: FDA-Public Use
  Company Number: GB-MHRA-EYC 00248085

PATIENT
  Age: 44 Year
  Sex: Male
  Weight: 108 kg

DRUGS (6)
  1. CIPROFLOXACIN [Suspect]
     Active Substance: CIPROFLOXACIN
     Indication: Epididymitis
     Dosage: 500 MILLIGRAM, TWO TIMES A DAY
     Route: 048
     Dates: start: 20170805, end: 20170830
  2. OFLOXACIN [Suspect]
     Active Substance: OFLOXACIN
     Indication: Product used for unknown indication
     Dosage: 200 GRAM, ONCE A DAY
     Route: 065
  3. COCODAMOL [Concomitant]
     Active Substance: ACETAMINOPHEN\CODEINE PHOSPHATE
     Indication: Product used for unknown indication
     Dosage: UNK
     Route: 065
  4. FLUOXETINE [Concomitant]
     Active Substance: FLUOXETINE HYDROCHLORIDE
     Indication: Product used for unknown indication
     Dosage: UNK
     Route: 065
  5. IMIPRAMINE HYDROCHLORIDE [Concomitant]
     Active Substance: IMIPRAMINE HYDROCHLORIDE
     Indication: Product used for unknown indication
     Dosage: UNK
     Route: 065
  6. ACETAMINOPHEN [Concomitant]
     Active Substance: ACETAMINOPHEN
     Indication: Product used for unknown indication
     Dosage: UNK
     Route: 065

REACTIONS (29)
  - Tendon pain [Not Recovered/Not Resolved]
  - Tendon rupture [Recovered/Resolved with Sequelae]
  - Neuropathy peripheral [Not Recovered/Not Resolved]
  - Tinnitus [Not Recovered/Not Resolved]
  - Anxiety [Not Recovered/Not Resolved]
  - Feeling abnormal [Not Recovered/Not Resolved]
  - Arthralgia [Unknown]
  - Night sweats [Unknown]
  - Norepinephrine increased [Unknown]
  - Anger [Unknown]
  - Memory impairment [Unknown]
  - Tendonitis [Unknown]
  - Sensory loss [Unknown]
  - Hypoaesthesia [Unknown]
  - Paraesthesia [Unknown]
  - Food allergy [Unknown]
  - Muscle twitching [Unknown]
  - Insomnia [Unknown]
  - Stress [Unknown]
  - Myalgia [Unknown]
  - Neuralgia [Unknown]
  - Hypertension [Unknown]
  - Asthenia [Unknown]
  - Mobility decreased [Unknown]
  - Palpitations [Unknown]
  - Vision blurred [Unknown]
  - Weight increased [Unknown]
  - Heart rate increased [Unknown]
  - Hypersensitivity [Unknown]

NARRATIVE: CASE EVENT DATE: 20170901
